FAERS Safety Report 6940471-X (Version None)
Quarter: 2010Q3

REPORT INFORMATION
  Report Type: 
  Country: None (occurrence: None)
  Receive Date: 20100820
  Receipt Date: 20100809
  Transmission Date: 20110219
  Serious: Yes (Other)
  Sender: FDA-Public Use
  Company Number: 2010SP043224

PATIENT
  Age: 43 Year
  Sex: Female

DRUGS (5)
  1. SAPHRIS [Suspect]
     Indication: PRODUCT USED FOR UNKNOWN INDICATION
     Dosage: 5 MG;BID
  2. LAMOTRIGINE [Concomitant]
  3. LITHOBID [Concomitant]
  4. LORAZEPAM [Concomitant]
  5. ZOLOFT [Concomitant]

REACTIONS (2)
  - ABDOMINAL DISTENSION [None]
  - DRUG HYPERSENSITIVITY [None]
